FAERS Safety Report 5386179-6 (Version None)
Quarter: 2007Q3

REPORT INFORMATION
  Report Type: 
  Country: None (occurrence: None)
  Receive Date: 20070710
  Receipt Date: 20070710
  Transmission Date: 20080115
  Serious: Yes (Other)
  Sender: FDA-Public Use
  Company Number: None

PATIENT
  Sex: Female
  Weight: 90.7194 kg

DRUGS (4)
  1. INDAPAMIDE [Suspect]
     Indication: FLUID RETENTION
     Dosage: ONE TABLET -9 DAYS- TWO TABLETS - ONE DAY- ONCE DAILY PO
     Route: 048
     Dates: start: 20070630, end: 20070706
  2. INDAPAMIDE [Suspect]
     Indication: HYPERTENSION
     Dosage: ONE TABLET -9 DAYS- TWO TABLETS - ONE DAY- ONCE DAILY PO
     Route: 048
     Dates: start: 20070630, end: 20070706
  3. INDAPAMIDE [Suspect]
     Indication: FLUID RETENTION
     Dosage: ONE TABLET -9 DAYS- TWO TABLETS - ONE DAY- ONCE DAILY PO
     Route: 048
     Dates: start: 20070707, end: 20070707
  4. INDAPAMIDE [Suspect]
     Indication: HYPERTENSION
     Dosage: ONE TABLET -9 DAYS- TWO TABLETS - ONE DAY- ONCE DAILY PO
     Route: 048
     Dates: start: 20070707, end: 20070707

REACTIONS (6)
  - BLOOD PRESSURE INCREASED [None]
  - EXTRASYSTOLES [None]
  - FEELING ABNORMAL [None]
  - HEART RATE INCREASED [None]
  - MEMORY IMPAIRMENT [None]
  - VISION BLURRED [None]
